FAERS Safety Report 10018686 (Version 2)
Quarter: 2014Q1

REPORT INFORMATION
  Report Type: Report from Study
  Country: BE (occurrence: BE)
  Receive Date: 20140318
  Receipt Date: 20140318
  Transmission Date: 20141002
  Serious: Yes (Death, Hospitalization)
  Sender: FDA-Public Use
  Company Number: BE-BAYER-2014-005553

PATIENT
  Age: 61 Year
  Sex: Male

DRUGS (2)
  1. NEXAVAR [Suspect]
     Indication: HEPATOCELLULAR CARCINOMA
     Dosage: DAILY DOSE 800 MG
     Route: 048
     Dates: start: 20140107, end: 20140227
  2. ZOPICLONE [Concomitant]

REACTIONS (9)
  - Intestinal perforation [None]
  - Hepatocellular carcinoma [Fatal]
  - Diarrhoea [None]
  - Epistaxis [None]
  - Mouth injury [None]
  - Erythema [None]
  - Palmar-plantar erythrodysaesthesia syndrome [None]
  - Erythema [None]
  - Asthenia [None]
